FAERS Safety Report 7987490-2 (Version None)
Quarter: 2011Q4

REPORT INFORMATION
  Report Type: 
  Country: None (occurrence: None)
  Receive Date: 20111216
  Receipt Date: 20111206
  Transmission Date: 20120403
  Serious: Yes (Other)
  Sender: FDA-Public Use
  Company Number: PHHY2011NL106829

PATIENT
  Sex: Male
  Weight: 63 kg

DRUGS (5)
  1. SIMVASTATIN [Concomitant]
     Dosage: 40 MG, UNK
  2. AMLODIPINE [Concomitant]
     Dosage: 10 MG, UNK
  3. RASILEZ [Suspect]
     Indication: HYPERTENSION
     Dosage: 300 MG, DAILY
     Dates: start: 20110802, end: 20110803
  4. TOLBUTAMIDE [Concomitant]
     Dosage: 1000 MG, UNK
  5. METFORMIN HCL [Concomitant]
     Dosage: 500 MG, UNK

REACTIONS (1)
  - RENAL FAILURE [None]
